FAERS Safety Report 6420675-5 (Version None)
Quarter: 2009Q4

REPORT INFORMATION
  Report Type: 
  Country: None (occurrence: None)
  Receive Date: 20091027
  Receipt Date: 20091012
  Transmission Date: 20100525
  Serious: Yes (Hospitalization)
  Sender: FDA-Public Use
  Company Number: APP200900541

PATIENT
  Age: 60 Year
  Sex: Male
  Weight: 111.1313 kg

DRUGS (2)
  1. NAROPIN [Suspect]
     Indication: OSTEOARTHRITIS
     Dosage: 9 ML, KNEE INJECTION
     Dates: start: 20090813, end: 20090813
  2. DEPO-MEDROL [Suspect]
     Indication: OSTEOARTHRITIS
     Dosage: NDC#0810341328
     Dates: start: 20090813

REACTIONS (4)
  - JOINT SWELLING [None]
  - PAIN [None]
  - STAPHYLOCOCCAL BACTERAEMIA [None]
  - STAPHYLOCOCCAL INFECTION [None]
